FAERS Safety Report 9592775 (Version 1)
Quarter: 2013Q4

REPORT INFORMATION
  Report Type: Spontaneous
  Country: US (occurrence: None)
  Receive Date: 20131003
  Receipt Date: 20131003
  Transmission Date: 20140711
  Serious: Yes (Other)
  Sender: FDA-Public Use
  Company Number: None

PATIENT
  Age: 34 Year
  Sex: Female
  Weight: 65.9 kg

DRUGS (1)
  1. HUMIRA, 40 MG, ABBVIE [Suspect]
     Indication: RHEUMATOID ARTHRITIS
     Route: 058

REACTIONS (5)
  - Exposure during pregnancy [None]
  - Rheumatoid arthritis [None]
  - Local swelling [None]
  - Pain in extremity [None]
  - Pain in extremity [None]
